FAERS Safety Report 5916377-1 (Version None)
Quarter: 2008Q4

REPORT INFORMATION
  Report Type: 
  Country: None (occurrence: None)
  Receive Date: 20081013
  Receipt Date: 20081006
  Transmission Date: 20090506
  Serious: Yes (Hospitalization, Other)
  Sender: FDA-Public Use
  Company Number: NL-ELI_LILLY_AND_COMPANY-NL200809005650

PATIENT

DRUGS (4)
  1. PROZAC [Suspect]
     Indication: DEPRESSION
     Dosage: 20 MG, 2/D
     Route: 064
     Dates: start: 19980101, end: 20080824
  2. PROMETHAZINE [Concomitant]
     Dosage: 25 MG, UNK
     Dates: start: 19980101
  3. VENTOLIN [Concomitant]
     Dosage: 200 UG, UNK
  4. BECLOMETHASONE DIPROPIONATE [Concomitant]
     Dosage: 100 UG, UNK

REACTIONS (5)
  - BRADYCARDIA NEONATAL [None]
  - CYANOSIS NEONATAL [None]
  - DRUG EXPOSURE DURING PREGNANCY [None]
  - INFANTILE APNOEIC ATTACK [None]
  - VOMITING [None]
